FAERS Safety Report 24117335 (Version 1)
Quarter: 2024Q3

REPORT INFORMATION
  Report Type: Spontaneous
  Country: US (occurrence: US)
  Receive Date: 20240722
  Receipt Date: 20240722
  Transmission Date: 20241017
  Serious: No
  Sender: DR REDDYS
  Company Number: US-drreddys-SPO/USA/23/0187111

PATIENT
  Age: 22 Year
  Sex: Male

DRUGS (2)
  1. ACCUTANE [Suspect]
     Active Substance: ISOTRETINOIN
     Indication: Acne
     Dosage: BOX OF 30 (3 PACKS OF 10 CAPSULES)
     Route: 065
     Dates: start: 202309, end: 20231019
  2. ACCUTANE [Suspect]
     Active Substance: ISOTRETINOIN

REACTIONS (1)
  - Anxiety [Unknown]
